FAERS Safety Report 21926846 (Version 1)
Quarter: 2023Q1

REPORT INFORMATION
  Report Type: Spontaneous
  Country: US (occurrence: None)
  Receive Date: 20230127
  Receipt Date: 20230127
  Transmission Date: 20230418
  Serious: No
  Sender: FDA-Public Use
  Company Number: None

PATIENT
  Age: 5 Year
  Sex: Male
  Weight: 19.35 kg

DRUGS (1)
  1. AMOXICILLIN [Suspect]
     Active Substance: AMOXICILLIN
     Indication: Ear infection
     Dosage: OTHER QUANTITY : 100 ML;?FREQUENCY : EVERY 12 HOURS;?
     Route: 048
     Dates: start: 20230120

REACTIONS (2)
  - Extra dose administered [None]
  - Product dispensing error [None]

NARRATIVE: CASE EVENT DATE: 20230120
